FAERS Safety Report 7022742-4 (Version None)
Quarter: 2010Q3

REPORT INFORMATION
  Report Type: 
  Country: None (occurrence: None)
  Receive Date: 20100930
  Receipt Date: 20100924
  Transmission Date: 20110219
  Serious: Yes (Other)
  Sender: FDA-Public Use
  Company Number: A0883218A

PATIENT
  Age: 43 Year
  Sex: Female

DRUGS (10)
  1. LAMICTAL [Suspect]
     Indication: BIPOLAR DISORDER
     Dosage: 200TAB TWICE PER DAY
     Route: 048
     Dates: start: 20080601
  2. GEODON [Concomitant]
  3. PHENYTOIN SODIUM [Concomitant]
  4. METOPROLOL TARTRATE [Concomitant]
  5. SIMVASTATIN [Concomitant]
  6. LISINOPRIL [Concomitant]
  7. ISOSORBIDE [Concomitant]
  8. THEOPHYLLINE [Concomitant]
  9. CLONAZEPAM [Concomitant]
  10. CYCLOBENZAPRINE [Concomitant]

REACTIONS (2)
  - MYALGIA [None]
  - NEUROPATHY PERIPHERAL [None]
